FAERS Safety Report 18476528 (Version 1)
Quarter: 2020Q4

REPORT INFORMATION
  Report Type: Spontaneous
  Country: FR (occurrence: FR)
  Receive Date: 20201107
  Receipt Date: 20201107
  Transmission Date: 20210114
  Serious: Yes (Hospitalization)
  Sender: FDA-Public Use
  Company Number: FR-ACCORD-207554

PATIENT
  Age: 47 Year
  Sex: Male

DRUGS (20)
  1. LEVOTHYROXINE. [Concomitant]
     Active Substance: LEVOTHYROXINE
     Dosage: STRENGTH75 MICROGRAMS, SCORED TABLET
  2. EUPRESSYL [Concomitant]
     Active Substance: URAPIDIL
     Dosage: STRENGTH:60MG
  3. PANTOPRAZOLE [Concomitant]
     Active Substance: PANTOPRAZOLE
  4. DOLIPRANE [Concomitant]
     Active Substance: ACETAMINOPHEN
     Dosage: STRENGTH:100MG
  5. MYCOPHENOLIC ACID. [Concomitant]
     Active Substance: MYCOPHENOLIC ACID
     Dosage: STRENGTH:500MG
  6. NEORAL [Concomitant]
     Active Substance: CYCLOSPORINE
     Dosage: STRENGTH:100 MG
  7. ACUPAN [Concomitant]
     Active Substance: NEFOPAM HYDROCHLORIDE
  8. PRAVASTATIN. [Concomitant]
     Active Substance: PRAVASTATIN
  9. CORTANCYL [Concomitant]
     Active Substance: PREDNISONE
  10. NEORAL [Interacting]
     Active Substance: CYCLOSPORINE
     Indication: TRANSPLANT
     Dosage: STRENGTH:25MG
     Route: 048
  11. BUPRENORPHINE. [Concomitant]
     Active Substance: BUPRENORPHINE
  12. LANTUS [Concomitant]
     Active Substance: INSULIN GLARGINE
  13. FUROSEMIDE. [Suspect]
     Active Substance: FUROSEMIDE
     Indication: HYPERTENSION
     Route: 048
  14. CERTICAN [Concomitant]
     Active Substance: EVEROLIMUS
  15. HUMALOG [Concomitant]
     Active Substance: INSULIN LISPRO
  16. BACTRIM [Concomitant]
     Active Substance: SULFAMETHOXAZOLE\TRIMETHOPRIM
  17. NEORAL [Concomitant]
     Active Substance: CYCLOSPORINE
     Dosage: STRENGTH:25 MG
  18. NEORAL [Interacting]
     Active Substance: CYCLOSPORINE
     Indication: TRANSPLANT
     Dosage: STRENGTH:100MG
     Route: 048
  19. COVERSYL [Interacting]
     Active Substance: PERINDOPRIL
     Indication: HYPERTENSION
     Dosage: STRENGTH:4 MG, SCORED TABLET
     Route: 048
     Dates: end: 20170503
  20. GABAPENTIN. [Concomitant]
     Active Substance: GABAPENTIN

REACTIONS (2)
  - Acute kidney injury [Recovered/Resolved]
  - Drug interaction [Unknown]

NARRATIVE: CASE EVENT DATE: 201705
